FAERS Safety Report 6125607-5 (Version None)
Quarter: 2009Q1

REPORT INFORMATION
  Report Type: 
  Country: None (occurrence: None)
  Receive Date: 20090320
  Receipt Date: 20090310
  Transmission Date: 20090719
  Serious: No
  Sender: FDA-Public Use
  Company Number: US-ROCHE-580545

PATIENT
  Sex: Female

DRUGS (5)
  1. ISOTRETINOIN [Suspect]
     Indication: DRUG USE FOR UNKNOWN INDICATION
     Route: 048
     Dates: start: 20070824, end: 20080101
  2. ISOTRETINOIN [Suspect]
     Route: 048
     Dates: start: 20080311, end: 20080520
  3. SOTRET [Suspect]
     Indication: DRUG USE FOR UNKNOWN INDICATION
     Dosage: THE PATIENT WAS DISPENSED SOTRET 40 MG CAPSULE ON 24-08-2007
     Route: 065
  4. YAZ [Concomitant]
     Indication: CONTRACEPTION
     Route: 048
  5. PRILOSEC [Concomitant]
     Dosage: FREQUENCY: PRN (AS NEEDED), UNIT: TRIAL
     Dates: start: 20081104

REACTIONS (2)
  - NO ADVERSE EVENT [None]
  - PREGNANCY [None]
